FAERS Safety Report 8093311-2 (Version None)
Quarter: 2012Q1

REPORT INFORMATION
  Report Type: 
  Country: None (occurrence: None)
  Receive Date: 20120128
  Receipt Date: 20110929
  Transmission Date: 20120608
  Serious: No
  Sender: FDA-Public Use
  Company Number: US-ABBOTT-11P-163-0843041-00

PATIENT
  Age: 28 Year
  Sex: Male

DRUGS (2)
  1. HUMIRA [Suspect]
     Indication: PSORIASIS
     Dates: start: 20060601, end: 20110707
  2. HUMIRA [Suspect]
     Dates: start: 20110910

REACTIONS (9)
  - HEADACHE [None]
  - RHINORRHOEA [None]
  - STAPHYLOCOCCAL INFECTION [None]
  - MALAISE [None]
  - FURUNCLE [None]
  - HERPES ZOSTER [None]
  - PYREXIA [None]
  - NASAL CONGESTION [None]
  - OROPHARYNGEAL PAIN [None]
